FAERS Safety Report 8176310-1 (Version None)
Quarter: 2012Q1

REPORT INFORMATION
  Report Type: 
  Country: None (occurrence: None)
  Receive Date: 20120301
  Receipt Date: 20120224
  Transmission Date: 20120608
  Serious: Yes (Hospitalization)
  Sender: FDA-Public Use
  Company Number: US-AMGEN-USASP2010004594

PATIENT
  Age: 91 Year
  Sex: Female

DRUGS (9)
  1. VYTORIN [Concomitant]
     Dosage: UNK
  2. PROLIA [Suspect]
     Indication: OSTEOPOROSIS POSTMENOPAUSAL
     Dosage: 60 MG, Q6MO
     Dates: start: 20101025, end: 20101025
  3. NIACIN [Concomitant]
     Dosage: UNK
  4. OMEGA 3                            /00931501/ [Concomitant]
     Dosage: UNK
  5. ARICEPT                            /01318901/ [Concomitant]
     Dosage: UNK
  6. LEVOXYL [Concomitant]
     Dosage: UNK
  7. ASPIRIN [Concomitant]
     Dosage: UNK
  8. CENTRUM SILVER                     /01292501/ [Concomitant]
     Dosage: UNK
  9. TOPROL-XL [Concomitant]
     Dosage: UNK

REACTIONS (2)
  - DIZZINESS [None]
  - LOSS OF CONSCIOUSNESS [None]
